FAERS Safety Report 9038440 (Version 1)
Quarter: 2013Q1

REPORT INFORMATION
  Report Type: Spontaneous
  Country: US (occurrence: US)
  Receive Date: 20130130
  Receipt Date: 20130130
  Transmission Date: 20140127
  Serious: No
  Sender: FDA-Public Use
  Company Number: US-ABBOTT-12P-163-0950508-00

PATIENT
  Sex: Female
  Weight: 66.74 kg

DRUGS (6)
  1. HUMIRA 40 MG/0.8 ML PEN [Suspect]
     Indication: RHEUMATOID ARTHRITIS
     Route: 058
     Dates: start: 20120224
  2. METHOTREXATE [Concomitant]
     Indication: RHEUMATOID ARTHRITIS
     Dosage: EIGHT 2.5MG
     Route: 048
  3. HYDROCHLOROQUINE [Concomitant]
     Indication: RHEUMATOID ARTHRITIS
  4. HYDROCODONE/APAP [Concomitant]
     Indication: RHEUMATOID ARTHRITIS
  5. LYRICA [Concomitant]
     Indication: RHEUMATOID ARTHRITIS
  6. CELEBREX [Concomitant]
     Indication: RHEUMATOID ARTHRITIS

REACTIONS (3)
  - Injection site pain [Not Recovered/Not Resolved]
  - Arthralgia [Not Recovered/Not Resolved]
  - Back pain [Not Recovered/Not Resolved]
